FAERS Safety Report 5051295-5 (Version None)
Quarter: 2006Q3

REPORT INFORMATION
  Report Type: 
  Country: None (occurrence: None)
  Receive Date: 20060710
  Receipt Date: 20060628
  Transmission Date: 20061208
  Serious: Yes (Hospitalization)
  Sender: FDA-Public Use
  Company Number: 2006-141543-NL

PATIENT
  Age: 44 Year
  Sex: Female

DRUGS (4)
  1. MIRTAZAPINE [Suspect]
     Indication: DEPRESSION
     Dosage: 30 MG QD ORAL
     Route: 048
     Dates: start: 20030301, end: 20051120
  2. ESCITALOPRAM [Suspect]
     Indication: DEPRESSION
     Dosage: DF ORAL
     Route: 048
     Dates: end: 20051120
  3. ZOLPIDEM TARTRATE [Concomitant]
  4. CODEINE/PHENYLTOLOXAMINE [Concomitant]

REACTIONS (2)
  - HEPATOCELLULAR DAMAGE [None]
  - ULTRASOUND BILIARY TRACT ABNORMAL [None]
